FAERS Safety Report 5837611-2 (Version None)
Quarter: 2008Q3

REPORT INFORMATION
  Report Type: 
  Country: None (occurrence: None)
  Receive Date: 20080807
  Receipt Date: 20080730
  Transmission Date: 20090109
  Serious: Yes (Other)
  Sender: FDA-Public Use
  Company Number: PHBS2008FR05253

PATIENT
  Age: 49 Year
  Sex: Female

DRUGS (2)
  1. FORMOAIR HFA [Suspect]
     Indication: ASTHMA
     Dosage: UNK
  2. LEVOTHYROX [Concomitant]

REACTIONS (4)
  - HYPOCALCAEMIA [None]
  - HYPOKALAEMIA [None]
  - MALAISE [None]
  - TACHYCARDIA [None]
